FAERS Safety Report 6368425-5 (Version None)
Quarter: 2009Q3

REPORT INFORMATION
  Report Type: 
  Country: None (occurrence: None)
  Receive Date: 20090831
  Receipt Date: 20090417
  Transmission Date: 20100115
  Serious: Yes (Other)
  Sender: FDA-Public Use
  Company Number: 187985USA

PATIENT
  Age: 38 Year
  Sex: Female
  Weight: 58.9676 kg

DRUGS (1)
  1. LEVONORGESTREL [Suspect]
     Indication: CONTRACEPTION
     Dosage: 1.5 MG (0.75 MG, 2 IN 1 D), ORAL
     Route: 048
     Dates: start: 20090221, end: 20090221

REACTIONS (1)
  - ECTOPIC PREGNANCY [None]
